FAERS Safety Report 7729082-6 (Version None)
Quarter: 2011Q3

REPORT INFORMATION
  Report Type: 
  Country: None (occurrence: None)
  Receive Date: 20110817
  Receipt Date: 20110414
  Transmission Date: 20111222
  Serious: Yes (Other)
  Sender: FDA-Public Use
  Company Number: 201110423

PATIENT
  Age: 62 Year
  Sex: Female

DRUGS (4)
  1. DROPERIDOL [Concomitant]
  2. LIORESAL [Suspect]
     Indication: MUSCLE SPASTICITY
     Dosage: 55.76 MCG, DAILY, INTRATHECAL
  3. FENTANYL-100 [Concomitant]
  4. BUPIVICAINE [Concomitant]

REACTIONS (1)
  - IMPLANT SITE PAIN [None]
